FAERS Safety Report 7677947-6 (Version None)
Quarter: 2011Q3

REPORT INFORMATION
  Report Type: 
  Country: None (occurrence: None)
  Receive Date: 20110811
  Receipt Date: 20110802
  Transmission Date: 20111222
  Serious: Yes (Hospitalization, Other)
  Sender: FDA-Public Use
  Company Number: US-ACTELION-A-US2011-52289

PATIENT

DRUGS (2)
  1. TRACLEER [Suspect]
     Indication: PULMONARY ARTERIAL HYPERTENSION
     Dosage: UNK
     Route: 048
     Dates: start: 20050105
  2. CALCIUM CHANNEL BLOCKERS [Concomitant]

REACTIONS (3)
  - POST PROCEDURAL BILE LEAK [None]
  - ABDOMINAL HERNIA [None]
  - INCISIONAL HERNIA GANGRENOUS [None]
